FAERS Safety Report 6610059-9 (Version None)
Quarter: 2010Q1

REPORT INFORMATION
  Report Type: 
  Country: None (occurrence: None)
  Receive Date: 20100302
  Receipt Date: 20100217
  Transmission Date: 20100710
  Serious: Yes (Death)
  Sender: FDA-Public Use
  Company Number: US-MYLANLABS-2010S1002672

PATIENT
  Sex: Female

DRUGS (2)
  1. FENTANYL CITRATE [Suspect]
     Route: 062
     Dates: start: 20080214
  2. FENTANYL CITRATE [Suspect]
     Route: 062
     Dates: start: 20080214

REACTIONS (1)
  - NARCOTIC INTOXICATION [None]
